FAERS Safety Report 9253956 (Version 1)
Quarter: 2013Q1

REPORT INFORMATION
  Report Type: Spontaneous
  Country: US (occurrence: None)
  Receive Date: 20121211
  Receipt Date: 20121211
  Transmission Date: 20140127
  Serious: Yes (Other)
  Sender: FDA-Public Use
  Company Number: 1209USA003696

PATIENT
  Sex: Female

DRUGS (3)
  1. ISENTRESS [Suspect]
     Route: 064
  2. RETROVIR [Suspect]
     Dosage: 2 MG/KH, ONCE, TRANSPLACENTAL
     Route: 064
  3. TRUVADA [Suspect]
     Route: 064

REACTIONS (1)
  - Foetal exposure during pregnancy [None]
